FAERS Safety Report 12924542 (Version 1)
Quarter: 2016Q4

REPORT INFORMATION
  Report Type: Spontaneous
  Country: US (occurrence: US)
  Receive Date: 20161109
  Receipt Date: 20161109
  Transmission Date: 20170207
  Serious: Yes (Other)
  Sender: FDA-Public Use
  Company Number: US-BRISTOL-MYERS SQUIBB COMPANY-BMS-2016-087971

PATIENT
  Sex: Female

DRUGS (3)
  1. IMODIUM [Concomitant]
     Active Substance: LOPERAMIDE HYDROCHLORIDE
     Indication: PRODUCT USED FOR UNKNOWN INDICATION
     Route: 065
  2. OPDIVO [Suspect]
     Active Substance: NIVOLUMAB
     Indication: RENAL CELL CARCINOMA
     Dosage: UNK UNK, Q2WK
     Route: 042
  3. PREDNISONE. [Concomitant]
     Active Substance: PREDNISONE
     Indication: PRODUCT USED FOR UNKNOWN INDICATION
     Route: 065

REACTIONS (20)
  - Mood altered [Unknown]
  - Vision blurred [Recovered/Resolved]
  - Hypertension [Unknown]
  - Dizziness [Recovered/Resolved]
  - Abdominal pain [Unknown]
  - Musculoskeletal stiffness [Unknown]
  - Central nervous system lesion [Unknown]
  - Somnolence [Unknown]
  - Stomatitis [Recovering/Resolving]
  - Intracranial mass [Unknown]
  - Cough [Unknown]
  - Decreased appetite [Unknown]
  - Headache [Recovered/Resolved]
  - Joint swelling [Recovering/Resolving]
  - Pruritus [Unknown]
  - Photosensitivity reaction [Recovered/Resolved]
  - Dyspnoea [Unknown]
  - Diarrhoea [Unknown]
  - Fatigue [Recovered/Resolved]
  - Nausea [Unknown]
